FAERS Safety Report 9387527 (Version 1)
Quarter: 2013Q3

REPORT INFORMATION
  Report Type: Spontaneous
  Country: US (occurrence: US)
  Receive Date: 20130708
  Receipt Date: 20130708
  Transmission Date: 20140515
  Serious: Yes (Death)
  Sender: FDA-Public Use
  Company Number: US-PFIZER INC-2013198215

PATIENT
  Age: 55 Year
  Sex: Male

DRUGS (7)
  1. XALKORI [Suspect]
     Indication: BRONCHIAL CARCINOMA
     Dosage: 250 MG, 2X/DAY
     Route: 048
     Dates: start: 20111017, end: 20130329
  2. TARCEVA [Concomitant]
  3. FOLIC ACID [Concomitant]
  4. LORAZEPAM [Concomitant]
  5. LEXAPRO [Concomitant]
  6. MORPHINE SULFATE [Concomitant]
  7. LORTAB [Concomitant]

REACTIONS (1)
  - Death [Fatal]
